FAERS Safety Report 8544156-8 (Version None)
Quarter: 2012Q3

REPORT INFORMATION
  Report Type: 
  Country: None (occurrence: None)
  Receive Date: 20120727
  Receipt Date: 20120723
  Transmission Date: 20120928
  Serious: Yes (Hospitalization)
  Sender: FDA-Public Use
  Company Number: US-PFIZER INC-2012177803

PATIENT
  Sex: Male

DRUGS (3)
  1. SUNITINIB MALATE [Suspect]
     Dosage: UNK
     Dates: start: 20120210
  2. SUNITINIB MALATE [Suspect]
     Dosage: UNK
     Dates: start: 20120329
  3. MDX-1106 [Suspect]
     Indication: RENAL CELL CARCINOMA
     Dosage: UNK
     Route: 042
     Dates: start: 20111201, end: 20111222

REACTIONS (2)
  - COLITIS [None]
  - ABDOMINAL PAIN [None]
